FAERS Safety Report 18621389 (Version 1)
Quarter: 2020Q4

REPORT INFORMATION
  Report Type: Report from Study
  Country: JP (occurrence: JP)
  Receive Date: 20201216
  Receipt Date: 20201216
  Transmission Date: 20210114
  Serious: Yes (Other)
  Sender: FDA-Public Use
  Company Number: JP-ACCORD-210742

PATIENT
  Age: 8 Decade
  Sex: Male
  Weight: 65 kg

DRUGS (5)
  1. AMLODIPINE [Concomitant]
     Active Substance: AMLODIPINE BESYLATE
  2. ALCOHOL. [Concomitant]
     Active Substance: ALCOHOL
  3. SILDENAFIL. [Suspect]
     Active Substance: SILDENAFIL
     Indication: HYPERTENSION
  4. TADALAFIL. [Suspect]
     Active Substance: TADALAFIL
     Indication: HYPERTENSION
  5. TELMISARTAN. [Concomitant]
     Active Substance: TELMISARTAN

REACTIONS (1)
  - Altered state of consciousness [Unknown]
